FAERS Safety Report 9002703 (Version 1)
Quarter: 2013Q1

REPORT INFORMATION
  Report Type: Spontaneous
  Country: US (occurrence: US)
  Receive Date: 20130107
  Receipt Date: 20130107
  Transmission Date: 20140127
  Serious: Yes (Other)
  Sender: FDA-Public Use
  Company Number: US-GLAXOSMITHKLINE-A0977784A

PATIENT
  Age: 54 Year
  Sex: Male

DRUGS (4)
  1. BENLYSTA [Suspect]
     Indication: SYSTEMIC LUPUS ERYTHEMATOSUS
     Dosage: 1200MG UNKNOWN
     Route: 042
     Dates: start: 20111024
  2. LYRICA [Concomitant]
  3. XANAX [Concomitant]
     Dosage: .5MG AT NIGHT
  4. CELLCEPT [Concomitant]
     Dates: end: 20120105

REACTIONS (1)
  - Suicidal ideation [Recovered/Resolved]
